FAERS Safety Report 10783557 (Version 1)
Quarter: 2015Q1

REPORT INFORMATION
  Report Type: Report from Study
  Country: DK (occurrence: DK)
  Receive Date: 20150210
  Receipt Date: 20150210
  Transmission Date: 20150721
  Serious: Yes (Other)
  Sender: FDA-Public Use
  Company Number: DK-ROXANE LABORATORIES, INC.-2015-BI-06101GD

PATIENT

DRUGS (9)
  1. MAGNESIUM OXIDE. [Concomitant]
     Active Substance: MAGNESIUM OXIDE
     Indication: PRODUCT USED FOR UNKNOWN INDICATION
     Dosage: 1 G
     Route: 065
  2. CEFUROXIME. [Concomitant]
     Active Substance: CEFUROXIME
     Indication: ANTIBIOTIC PROPHYLAXIS
     Dosage: 1500 MG
     Route: 042
  3. MORPHINE [Suspect]
     Active Substance: MORPHINE
     Dosage: 40 MG
     Route: 048
  4. PARACETAMOL [Suspect]
     Active Substance: ACETAMINOPHEN
     Indication: PROCEDURAL PAIN
     Dosage: 1000 MG
     Route: 054
  5. MORPHINE [Suspect]
     Active Substance: MORPHINE
     Indication: PROCEDURAL PAIN
     Dosage: 5 MG, FURTHER ADMINISTRATIONS WERE ALLOWED UP TO A TOTAL OF 25 MG
     Route: 042
  6. CEFUROXIME. [Concomitant]
     Active Substance: CEFUROXIME
     Dosage: 4500 MG
     Route: 042
  7. PANTOPRAZOLE [Concomitant]
     Active Substance: PANTOPRAZOLE SODIUM
     Indication: PRODUCT USED FOR UNKNOWN INDICATION
     Dosage: 40 MG
     Route: 065
  8. PARACETAMOL [Suspect]
     Active Substance: ACETAMINOPHEN
     Dosage: 4000 MG
     Route: 048
  9. ONDANSETRON [Suspect]
     Active Substance: ONDANSETRON
     Indication: PROCEDURAL PAIN
     Dosage: 4 MG
     Route: 042

REACTIONS (1)
  - Transient ischaemic attack [Recovered/Resolved]
